FAERS Safety Report 4361097-0 (Version None)
Quarter: 2004Q2

REPORT INFORMATION
  Report Type: 
  Country: None (occurrence: None)
  Receive Date: 20040520
  Receipt Date: 20010530
  Transmission Date: 20050107
  Serious: Yes (Other)
  Sender: FDA-Public Use
  Company Number: DE-MERCK-01065530

PATIENT
  Age: 79 Year
  Sex: Female
  Weight: 70 kg

DRUGS (3)
  1. BISOPROLOL FUMARATE [Concomitant]
     Indication: HYPERTENSION
     Route: 065
     Dates: end: 20010501
  2. LOSARTAN POTASSIUM [Suspect]
     Indication: HYPERTENSION
     Route: 048
     Dates: start: 20010518, end: 20010522
  3. OMEPRAZOLE [Concomitant]
     Indication: GASTRITIS
     Route: 048
     Dates: start: 20010518, end: 20010525

REACTIONS (8)
  - ABDOMINAL HAEMATOMA [None]
  - EAR HAEMORRHAGE [None]
  - GASTROINTESTINAL HAEMORRHAGE [None]
  - HAEMATOMA [None]
  - HAEMORRHAGIC DIATHESIS [None]
  - PETECHIAE [None]
  - REFUSAL OF TREATMENT BY PATIENT [None]
  - THROMBOCYTOPENIA [None]
